FAERS Safety Report 23997166 (Version 1)
Quarter: 2024Q2

REPORT INFORMATION
  Report Type: Report from Study
  Country: JP (occurrence: JP)
  Receive Date: 20240621
  Receipt Date: 20240621
  Transmission Date: 20240716
  Serious: Yes (Other)
  Sender: FDA-Public Use
  Company Number: JP-SHIRE-JP201823313

PATIENT
  Age: 9 Year
  Sex: Male
  Weight: 40.1 kg

DRUGS (16)
  1. GUANFACINE HYDROCHLORIDE [Suspect]
     Active Substance: GUANFACINE HYDROCHLORIDE
     Indication: Attention deficit hyperactivity disorder
     Route: 048
     Dates: start: 20180209, end: 20180222
  2. GUANFACINE HYDROCHLORIDE [Suspect]
     Active Substance: GUANFACINE HYDROCHLORIDE
     Route: 048
     Dates: start: 20180223, end: 20180301
  3. GUANFACINE HYDROCHLORIDE [Suspect]
     Active Substance: GUANFACINE HYDROCHLORIDE
     Route: 048
     Dates: start: 20180302, end: 20180306
  4. GUANFACINE HYDROCHLORIDE [Suspect]
     Active Substance: GUANFACINE HYDROCHLORIDE
     Route: 048
     Dates: start: 20180307, end: 20180323
  5. GUANFACINE HYDROCHLORIDE [Suspect]
     Active Substance: GUANFACINE HYDROCHLORIDE
     Route: 048
     Dates: start: 20180324, end: 20180603
  6. GUANFACINE HYDROCHLORIDE [Suspect]
     Active Substance: GUANFACINE HYDROCHLORIDE
     Route: 048
     Dates: start: 20180604, end: 20180610
  7. GUANFACINE HYDROCHLORIDE [Suspect]
     Active Substance: GUANFACINE HYDROCHLORIDE
     Route: 048
     Dates: start: 20180611, end: 20180618
  8. CARBOCYSTEINE [Concomitant]
     Active Substance: CARBOCYSTEINE
     Indication: Bronchitis
     Dosage: 250 MILLIGRAM
     Route: 048
     Dates: start: 20180410, end: 20180415
  9. CARBOCYSTEINE [Concomitant]
     Active Substance: CARBOCYSTEINE
     Indication: Nasopharyngitis
  10. PROCATEROL HYDROCHLORIDE [Concomitant]
     Active Substance: PROCATEROL HYDROCHLORIDE
     Indication: Bronchitis
     Dosage: 25 MICROGRAM
     Route: 048
     Dates: start: 20180410, end: 20180415
  11. PROCATEROL HYDROCHLORIDE [Concomitant]
     Active Substance: PROCATEROL HYDROCHLORIDE
     Indication: Nasopharyngitis
  12. AZUSALEON [Concomitant]
     Indication: Rhinitis allergic
     Dosage: 10 MICROGRAM
     Route: 048
     Dates: start: 20180410, end: 20180415
  13. FLUTICASONE FUROATE [Concomitant]
     Active Substance: FLUTICASONE FUROATE
     Indication: Rhinitis allergic
     Dosage: 55 MICROGRAM
     Route: 045
     Dates: start: 20180319, end: 20180325
  14. PATANOL [Concomitant]
     Active Substance: OLOPATADINE HYDROCHLORIDE
     Indication: Conjunctivitis allergic
     Dosage: 2 GTT DROPS, QD
     Route: 047
     Dates: start: 20180319, end: 20180325
  15. COCARL [Concomitant]
     Active Substance: ACETAMINOPHEN
     Indication: Headache
     Route: 048
     Dates: start: 20180410, end: 20180415
  16. COCARL [Concomitant]
     Active Substance: ACETAMINOPHEN
     Indication: Bronchitis

REACTIONS (6)
  - Long QT syndrome [Recovered/Resolved]
  - Bradycardia [Recovered/Resolved]
  - Intentional product use issue [Unknown]
  - Malaise [Recovered/Resolved]
  - Bronchitis [Recovered/Resolved]
  - Nasopharyngitis [Recovered/Resolved]

NARRATIVE: CASE EVENT DATE: 20180308
